FAERS Safety Report 7110866-2 (Version None)
Quarter: 2010Q4

REPORT INFORMATION
  Report Type: 
  Country: None (occurrence: None)
  Receive Date: 20101118
  Receipt Date: 20101109
  Transmission Date: 20110411
  Serious: Yes (Other)
  Sender: FDA-Public Use
  Company Number: PHHY2010JP76400

PATIENT
  Sex: Male

DRUGS (1)
  1. NEORAL [Suspect]
     Route: 048

REACTIONS (1)
  - DEMENTIA [None]
